FAERS Safety Report 23969184 (Version 1)
Quarter: 2024Q2

REPORT INFORMATION
  Report Type: Report from Study
  Country: US (occurrence: None)
  Receive Date: 20240612
  Receipt Date: 20240612
  Transmission Date: 20240716
  Serious: Yes (Other)
  Sender: FDA-Public Use
  Company Number: 2024A134052

PATIENT
  Age: 20184 Day
  Sex: Female

DRUGS (1)
  1. FASENRA [Suspect]
     Active Substance: BENRALIZUMAB
     Indication: Asthma
     Route: 058
     Dates: start: 202211

REACTIONS (2)
  - Gastrointestinal disorder [Recovered/Resolved]
  - Post procedural swelling [Unknown]

NARRATIVE: CASE EVENT DATE: 20240531
